FAERS Safety Report 4913386-6 (Version None)
Quarter: 2006Q1

REPORT INFORMATION
  Report Type: 
  Country: None (occurrence: None)
  Receive Date: 20060210
  Receipt Date: 20060202
  Transmission Date: 20060701
  Serious: Yes (Death, Hospitalization)
  Sender: FDA-Public Use
  Company Number: B0409078A

PATIENT
  Age: 67 Year
  Sex: Female

DRUGS (13)
  1. AUGMENTIN '250' [Suspect]
     Indication: LOWER RESPIRATORY TRACT INFECTION
     Dosage: 625 MG, TWICE PER DAY; ORAL
     Route: 048
     Dates: start: 20051125, end: 20051128
  2. ACETAMINOPHEN [Suspect]
     Indication: DRUG USE FOR UNKNOWN INDICATION
     Dosage: ORAL
     Route: 048
     Dates: start: 20050101, end: 20051130
  3. PHENPROCOUMON TABLET (PHENPROCOUMON) [Suspect]
     Indication: DRUG USE FOR UNKNOWN INDICATION
     Dosage: 3 MG, AS REQUIRED; ORAL
     Route: 048
  4. METOPROLOL TARTRATE [Concomitant]
  5. LOSARTAN POTASSIUM [Concomitant]
  6. CALCIUM ACETATE [Concomitant]
  7. SEVELAMER HYDROCHLORIDE [Concomitant]
  8. CINACALCET HYDROCHLORIDE [Concomitant]
  9. ALENDRONATE SODIUM [Concomitant]
  10. ASCORBIC ACID+ FOLIC+ VITB [Concomitant]
  11. THYROXINE SODIUM [Concomitant]
  12. PREDNISONE [Concomitant]
  13. CALCITRIOL [Concomitant]

REACTIONS (17)
  - ARTHRALGIA [None]
  - ASCITES [None]
  - CHOLELITHIASIS [None]
  - DYSPNOEA [None]
  - GASTROINTESTINAL HAEMORRHAGE [None]
  - HAEMATEMESIS [None]
  - HAEMODYNAMIC INSTABILITY [None]
  - HEPATIC FAILURE [None]
  - HEPATOCELLULAR DAMAGE [None]
  - HYPERTONIA [None]
  - HYPOTENSION [None]
  - INTERNATIONAL NORMALISED RATIO INCREASED [None]
  - MELAENA [None]
  - PLEURAL EFFUSION [None]
  - PYREXIA [None]
  - SEDATION [None]
  - SOMNOLENCE [None]
